FAERS Safety Report 6526531-6 (Version None)
Quarter: 2010Q1

REPORT INFORMATION
  Report Type: 
  Country: None (occurrence: None)
  Receive Date: 20100105
  Receipt Date: 20091225
  Transmission Date: 20100710
  Serious: Yes (Other)
  Sender: FDA-Public Use
  Company Number: JP-BRISTOL-MYERS SQUIBB COMPANY-14754816

PATIENT
  Age: 3 Decade
  Sex: Female

DRUGS (5)
  1. ABILIFY [Suspect]
     Indication: SCHIZOPHRENIA
     Route: 048
  2. DOGMATYL [Suspect]
     Route: 065
  3. DEPROMEL [Suspect]
     Dosage: FORM: TABS
     Route: 048
  4. CERCINE [Suspect]
     Route: 065
  5. SOLANAX [Suspect]
     Dosage: FORM: TABS
     Route: 048

REACTIONS (2)
  - ABORTION [None]
  - PREGNANCY [None]
